FAERS Safety Report 21405190 (Version 5)
Quarter: 2022Q4

REPORT INFORMATION
  Report Type: Spontaneous
  Country: US (occurrence: US)
  Receive Date: 20221004
  Receipt Date: 20221130
  Transmission Date: 20230112
  Serious: No
  Sender: FDA-Public Use
  Company Number: US-UNITED THERAPEUTICS-UNT-2022-022850

PATIENT
  Sex: Male
  Weight: 77.098 kg

DRUGS (11)
  1. REMODULIN [Suspect]
     Active Substance: TREPROSTINIL
     Indication: Pulmonary arterial hypertension
     Dosage: 0.020 ?G/KG, CONTINUING (PHARMACY PREFILLED WITH 2 ML PER CASSETTE; PUMP RATE 18 MCL PER HOUR)
     Route: 058
     Dates: start: 20220926
  2. REMODULIN [Suspect]
     Active Substance: TREPROSTINIL
     Dosage: 0.024 ?G/KG, CONTINUING (PHARMACY PREFILLED WITH 2 ML PER CASSETTE; PUMP RATE 18 MCL PER HOUR)
     Route: 058
     Dates: start: 202209
  3. REMODULIN [Suspect]
     Active Substance: TREPROSTINIL
     Dosage: 0.023 ?G/KG, CONTINUING (PHARMACY PREFILLED WITH 2.4 ML PER CASSETTE; PUMP RATE 21 MCL PER HOUR)
     Route: 058
     Dates: start: 2022
  4. REMODULIN [Suspect]
     Active Substance: TREPROSTINIL
     Indication: Pulmonary arterial hypertension
     Dosage: UNK, CONTINUING
     Route: 058
     Dates: start: 2022
  5. REMODULIN [Suspect]
     Active Substance: TREPROSTINIL
     Dosage: 0.030 ?G/KG, CONTINUING (FILL CASSETTE WITH 2.4 ML; RATE OF 27 MCL/HR)
     Route: 058
     Dates: start: 2022
  6. ORENITRAM [Suspect]
     Active Substance: TREPROSTINIL
     Indication: Pulmonary arterial hypertension
     Dosage: UNK
     Route: 048
     Dates: start: 20200303, end: 202209
  7. ORENITRAM [Suspect]
     Active Substance: TREPROSTINIL
     Dosage: 6 MG, TID
     Route: 048
  8. ORENITRAM [Suspect]
     Active Substance: TREPROSTINIL
     Indication: Pulmonary arterial hypertension
     Dosage: UNK
     Route: 048
  9. ORENITRAM [Suspect]
     Active Substance: TREPROSTINIL
     Indication: Pulmonary arterial hypertension
     Dosage: UNK
     Route: 048
  10. OPSUMIT [Concomitant]
     Active Substance: MACITENTAN
     Indication: Product used for unknown indication
     Route: 065
  11. SILDENAFIL [Concomitant]
     Active Substance: SILDENAFIL
     Indication: Product used for unknown indication
     Route: 065

REACTIONS (7)
  - Device occlusion [Recovered/Resolved]
  - Infusion site pain [Unknown]
  - Infusion site erythema [Recovering/Resolving]
  - Device failure [Unknown]
  - Device leakage [Unknown]
  - Musculoskeletal chest pain [Not Recovered/Not Resolved]
  - Loss of personal independence in daily activities [Unknown]

NARRATIVE: CASE EVENT DATE: 20220101
